FAERS Safety Report 7633248-3 (Version None)
Quarter: 2011Q3

REPORT INFORMATION
  Report Type: 
  Country: None (occurrence: None)
  Receive Date: 20110725
  Receipt Date: 20110718
  Transmission Date: 20111222
  Serious: Yes (Death, Other)
  Sender: FDA-Public Use
  Company Number: US-ROCHE-790909

PATIENT

DRUGS (2)
  1. VALGANCICLOVIR [Suspect]
     Indication: KAPOSI'S SARCOMA
     Route: 048
  2. ZIDOVUDINE [Suspect]
     Indication: KAPOSI'S SARCOMA
     Route: 048

REACTIONS (11)
  - NEUTROPENIA [None]
  - NAUSEA [None]
  - FEBRILE NEUTROPENIA [None]
  - ANAEMIA [None]
  - URINARY TRACT INFECTION [None]
  - ENDOCARDITIS BACTERIAL [None]
  - CLOSTRIDIUM DIFFICILE COLITIS [None]
  - INSOMNIA [None]
  - PNEUMOCOCCAL SEPSIS [None]
  - THROMBOCYTOPENIA [None]
  - CEREBRAL ARTERY EMBOLISM [None]
